FAERS Safety Report 9092170 (Version 1)
Quarter: 2013Q1

REPORT INFORMATION
  Report Type: Report from Study
  Country: US (occurrence: US)
  Receive Date: 20130201
  Receipt Date: 20130201
  Transmission Date: 20140127
  Serious: No
  Sender: FDA-Public Use
  Company Number: US-ABBOTT-12P-163-1022647-00

PATIENT
  Age: 36 Year
  Sex: Female

DRUGS (6)
  1. HUMIRA [Suspect]
     Indication: CROHN^S DISEASE
     Dosage: LOADING DOSE
     Dates: start: 20121213
  2. PENTASA [Concomitant]
     Indication: CROHN^S DISEASE
     Dosage: 500 MG TWO TABS TWICE A DAY
  3. PREDNISONE [Concomitant]
     Indication: PRODUCT USED FOR UNKNOWN INDICATION
  4. XYZAL [Concomitant]
     Indication: HYPERSENSITIVITY
  5. SYNTHROID [Concomitant]
     Indication: AUTOIMMUNE THYROIDITIS
  6. SYNTHROID [Concomitant]
     Dosage: ON SUNDAYS

REACTIONS (4)
  - Fatigue [Not Recovered/Not Resolved]
  - Injection site bruising [Not Recovered/Not Resolved]
  - Diarrhoea [Not Recovered/Not Resolved]
  - Injection site pain [Not Recovered/Not Resolved]
